FAERS Safety Report 10862573 (Version 1)
Quarter: 2015Q1

REPORT INFORMATION
  Report Type: Other
  Country: GB (occurrence: GB)
  Receive Date: 20150223
  Receipt Date: 20150223
  Transmission Date: 20150721
  Serious: Yes (Life-Threatening)
  Sender: FDA-Public Use
  Company Number: GB-SUN PHARMACEUTICAL INDUSTRIES LTD-2015SUN00474

PATIENT

DRUGS (1)
  1. OCTREOTIDE 50MICROGRAMS / ML SOLUTION FOR INJECTION [Suspect]
     Active Substance: OCTREOTIDE
     Dosage: 100 ?G, UNK
     Route: 042
     Dates: start: 20150129, end: 20150129

REACTIONS (2)
  - Apnoea [Recovered/Resolved]
  - Respiratory depression [Recovered/Resolved]

NARRATIVE: CASE EVENT DATE: 20150129
